FAERS Safety Report 5615035-0 (Version None)
Quarter: 2008Q1

REPORT INFORMATION
  Report Type: 
  Country: None (occurrence: None)
  Receive Date: 20080201
  Receipt Date: 20080123
  Transmission Date: 20080703
  Serious: Yes (Hospitalization)
  Sender: FDA-Public Use
  Company Number: M7002-00638-SPO-US

PATIENT
  Age: 53 Year
  Sex: Female

DRUGS (1)
  1. ONTAK [Suspect]
     Indication: MYCOSIS FUNGOIDES
     Dosage: 9 UG/KG, INTRAVENOUS INFUSION
     Route: 042

REACTIONS (6)
  - ATRIAL FIBRILLATION [None]
  - DIZZINESS [None]
  - GOITRE [None]
  - HYPERTHYROIDISM [None]
  - TACHYCARDIA [None]
  - TREMOR [None]
